FAERS Safety Report 25728316 (Version 1)
Quarter: 2025Q3

REPORT INFORMATION
  Report Type: Spontaneous
  Country: EU (occurrence: EU)
  Receive Date: 20250826
  Receipt Date: 20250826
  Transmission Date: 20251021
  Serious: Yes (Other)
  Sender: VERTEX
  Company Number: None

PATIENT
  Age: 6 Year
  Sex: Male
  Weight: 13 kg

DRUGS (5)
  1. ORKAMBI [Suspect]
     Active Substance: IVACAFTOR\LUMACAFTOR
     Indication: Cystic fibrosis
     Dosage: 02 SACHETS OF GRANULES (100 MG LUMACAFTOR/ 125MG IVACAFTOR), QD
     Route: 048
     Dates: start: 20210310, end: 20210416
  2. ORKAMBI [Suspect]
     Active Substance: IVACAFTOR\LUMACAFTOR
     Dosage: 01 SACHET OF GRANULES (100 MG LUMACAFTOR/ 125MG IVACAFTOR), QD
     Route: 048
     Dates: start: 20210511, end: 20210823
  3. ORKAMBI [Suspect]
     Active Substance: IVACAFTOR\LUMACAFTOR
     Dosage: 1.5 SACHET GRANULES (100 MG LUMACAFTOR/ 125MG IVACAFTOR), QD
     Route: 048
     Dates: start: 20210823, end: 20210923
  4. ORKAMBI [Suspect]
     Active Substance: IVACAFTOR\LUMACAFTOR
     Dosage: 02 SACHET OF GRANULES (100 MG LUMACAFTOR/ 125MG IVACAFTOR), QD
     Route: 048
     Dates: start: 20210923, end: 20220107
  5. ORKAMBI [Suspect]
     Active Substance: IVACAFTOR\LUMACAFTOR
     Dosage: 01 SACHET OF GRANULES (100 MG LUMACAFTOR/ 125MG IVACAFTOR), QD
     Route: 048
     Dates: start: 20220218, end: 20231222

REACTIONS (1)
  - Hepatic cytolysis [Not Recovered/Not Resolved]

NARRATIVE: CASE EVENT DATE: 20210416
